FAERS Safety Report 8199567-X (Version None)
Quarter: 2012Q1

REPORT INFORMATION
  Report Type: 
  Country: None (occurrence: None)
  Receive Date: 20120310
  Receipt Date: 20120224
  Transmission Date: 20120608
  Serious: Yes (Hospitalization)
  Sender: FDA-Public Use
  Company Number: US-BRISTOL-MYERS SQUIBB COMPANY-16402455

PATIENT
  Age: 49 Year
  Sex: Female

DRUGS (1)
  1. NULOJIX [Suspect]
     Indication: RENAL TRANSPLANT
     Dosage: EVERY 2WEEKS 5X; THEN MONTHLY AT 5 MG
     Dates: start: 20110901

REACTIONS (2)
  - CARDIAC FAILURE CONGESTIVE [None]
  - PULMONARY OEDEMA [None]
